FAERS Safety Report 17580829 (Version 2)
Quarter: 2020Q1

REPORT INFORMATION
  Report Type: Spontaneous
  Country: CH (occurrence: CH)
  Receive Date: 20200325
  Receipt Date: 20200331
  Transmission Date: 20200409
  Serious: Yes (Congenital Anomaly, Other)
  Sender: FDA-Public Use
  Company Number: CH-CHEPLA-C20201035_01

PATIENT
  Age: 0 Year
  Weight: 3.02 kg

DRUGS (2)
  1. XENICAL [Suspect]
     Active Substance: ORLISTAT
     Indication: OBESITY
     Dosage: 2^ 120MG/D
     Route: 064
     Dates: start: 20020908, end: 20030612
  2. COAPROVEL [Suspect]
     Active Substance: HYDROCHLOROTHIAZIDE\IRBESARTAN
     Indication: ESSENTIAL HYPERTENSION
     Dosage: COAPROVEL) 150MG/12.5MG/D
     Route: 064
     Dates: start: 20020908, end: 20030612

REACTIONS (2)
  - Talipes [Unknown]
  - Foetal exposure during pregnancy [Recovered/Resolved]

NARRATIVE: CASE EVENT DATE: 20020908
